FAERS Safety Report 14715536 (Version 1)
Quarter: 2018Q2

REPORT INFORMATION
  Report Type: Spontaneous
  Country: NL (occurrence: NL)
  Receive Date: 20180404
  Receipt Date: 20180404
  Transmission Date: 20180711
  Serious: Yes (Hospitalization, Other)
  Sender: FDA-Public Use
  Company Number: NL-VIIV HEALTHCARE LIMITED-NL2018GSK057079

PATIENT
  Age: 26 Year
  Sex: Male

DRUGS (2)
  1. TRIUMEQ [Suspect]
     Active Substance: ABACAVIR SULFATE\DOLUTEGRAVIR SODIUM\LAMIVUDINE
     Indication: HIV INFECTION
     Dosage: UNK
     Route: 048
     Dates: start: 201509
  2. TRIUMEQ [Suspect]
     Active Substance: ABACAVIR SULFATE\DOLUTEGRAVIR SODIUM\LAMIVUDINE
     Dosage: INGESTING 30 TABLETS (18G/1.5G/9G)
     Route: 048

REACTIONS (5)
  - Suicide attempt [Recovered/Resolved]
  - Mitochondrial toxicity [Recovered/Resolved]
  - Intentional overdose [Recovered/Resolved]
  - Hypokalaemia [Recovered/Resolved]
  - Lactic acidosis [Recovered/Resolved]
